FAERS Safety Report 7464608-1 (Version None)
Quarter: 2011Q2

REPORT INFORMATION
  Report Type: 
  Country: None (occurrence: None)
  Receive Date: 20110509
  Receipt Date: 20110426
  Transmission Date: 20111010
  Serious: Yes (Hospitalization, Other)
  Sender: FDA-Public Use
  Company Number: ZA-NOVOPROD-327249

PATIENT
  Age: 60 Year
  Sex: Male

DRUGS (7)
  1. GLUCOPHAGE [Concomitant]
     Dosage: 850 MG, BID
  2. GLUCOMED                           /00413701/ [Concomitant]
     Dosage: 80 MG, BID
  3. LEVEMIR [Suspect]
     Indication: TYPE 2 DIABETES MELLITUS
     Dosage: 10 U, QD
     Route: 058
     Dates: start: 20110415
  4. ASPIRIN [Concomitant]
     Dosage: 1 OD
  5. SIMVASTATIN [Concomitant]
     Dosage: 10 MG, QD
  6. PREXUM [Concomitant]
     Dosage: 10 MG, QD
  7. ZIAK [Concomitant]
     Dosage: 5 MG, QD

REACTIONS (2)
  - CONVULSION [None]
  - BLOOD GLUCOSE INCREASED [None]
